FAERS Safety Report 19519910 (Version 1)
Quarter: 2021Q3

REPORT INFORMATION
  Report Type: Spontaneous
  Country: US (occurrence: US)
  Receive Date: 20210712
  Receipt Date: 20210712
  Transmission Date: 20211014
  Serious: No
  Sender: FDA-Public Use
  Company Number: None

PATIENT
  Age: 69 Year
  Sex: Male
  Weight: 72 kg

DRUGS (1)
  1. BENADRYL ALLERGY [Suspect]
     Active Substance: DIPHENHYDRAMINE HYDROCHLORIDE
     Indication: ARTHROPOD STING
     Dosage: ?          QUANTITY:2 TABLET(S);?
     Route: 048
     Dates: start: 20210705, end: 20210705

REACTIONS (7)
  - Heart rate increased [None]
  - Urticaria [None]
  - Migraine [None]
  - Chest pain [None]
  - Therapeutic response shortened [None]
  - Rash [None]
  - Swelling [None]

NARRATIVE: CASE EVENT DATE: 20210705
